FAERS Safety Report 8471990-5 (Version None)
Quarter: 2012Q2

REPORT INFORMATION
  Report Type: 
  Country: None (occurrence: None)
  Receive Date: 20120323
  Receipt Date: 20110930
  Transmission Date: 20120825
  Serious: Yes (Other)
  Sender: FDA-Public Use
  Company Number: 163-21880-11100611

PATIENT
  Age: 70 Year
  Sex: Male
  Weight: 94.8018 kg

DRUGS (16)
  1. LORCET PLUS (VICODIN) [Concomitant]
  2. KEFLEX [Concomitant]
  3. KLONOPIN [Concomitant]
  4. VITAMIN B6 [Concomitant]
  5. ASPIRIN [Concomitant]
  6. AMOXOCILLIN (AMOXICILLIN) [Concomitant]
  7. CYMBALTA [Concomitant]
  8. RYNED (ALL OTHER THERAPEUTIC PRODUCTS) [Concomitant]
  9. REVLIMID [Suspect]
     Indication: MULTIPLE MYELOMA
     Dosage: 25 MG, 1 IN 1 D, PO ; 15 MG, DAILY 21/7, PO
     Route: 048
     Dates: start: 20100128
  10. REVLIMID [Suspect]
     Indication: MULTIPLE MYELOMA
     Dosage: 25 MG, 1 IN 1 D, PO ; 15 MG, DAILY 21/7, PO
     Route: 048
     Dates: start: 20100401
  11. DEXAMETHASONE [Concomitant]
  12. COLACE (DOCUSATE SODIUM) [Concomitant]
  13. CEPHALEXIN [Concomitant]
  14. VITAMIN B12 [Concomitant]
  15. HYDROCHLOROTHIAZIDE [Concomitant]
  16. VITAMIN B COMPLEX (B-KLOMPLEX ^LECIVA^) [Concomitant]

REACTIONS (1)
  - TOOTH ABSCESS [None]
